FAERS Safety Report 11726886 (Version 1)
Quarter: 2015Q4

REPORT INFORMATION
  Report Type: Report from Study
  Country: DE (occurrence: DE)
  Receive Date: 20151112
  Receipt Date: 20151112
  Transmission Date: 20160304
  Serious: Yes (Hospitalization)
  Sender: FDA-Public Use
  Company Number: DE-ROCHE-1619261

PATIENT
  Age: 75 Year
  Sex: Female
  Weight: 83.3 kg

DRUGS (12)
  1. TRASTUZUMAB [Suspect]
     Active Substance: TRASTUZUMAB
     Dosage: CYCLE 2
     Route: 042
     Dates: start: 20130909
  2. TRASTUZUMAB [Suspect]
     Active Substance: TRASTUZUMAB
     Dosage: CYCLE 9
     Route: 042
     Dates: start: 20140224
  3. CLEXANE [Concomitant]
     Active Substance: ENOXAPARIN SODIUM
     Indication: THROMBOSIS
     Dosage: PROHYLAXIS AGAINST THROMBOSIS
     Route: 065
  4. TRASTUZUMAB [Suspect]
     Active Substance: TRASTUZUMAB
     Indication: HER-2 POSITIVE BREAST CANCER
     Dosage: CYCLE 1
     Route: 042
     Dates: start: 20130819
  5. TRASTUZUMAB [Suspect]
     Active Substance: TRASTUZUMAB
     Dosage: CYCLE 10
     Route: 042
     Dates: start: 20140317
  6. TRASTUZUMAB [Suspect]
     Active Substance: TRASTUZUMAB
     Dosage: CYCLE 6
     Route: 042
     Dates: start: 20131223
  7. TRASTUZUMAB [Suspect]
     Active Substance: TRASTUZUMAB
     Dosage: CYCLE 7
     Route: 042
     Dates: start: 20140113
  8. TRASTUZUMAB [Suspect]
     Active Substance: TRASTUZUMAB
     Dosage: CYCLE 3
     Route: 042
     Dates: start: 20130930
  9. TRASTUZUMAB [Suspect]
     Active Substance: TRASTUZUMAB
     Dosage: CYCLE 8
     Route: 042
     Dates: start: 20140203
  10. TRASTUZUMAB [Suspect]
     Active Substance: TRASTUZUMAB
     Dosage: CYCLE 11, ON 07/APR/2014 LAST DOSE PRIOR TO SAE
     Route: 042
     Dates: start: 20140407
  11. TRASTUZUMAB [Suspect]
     Active Substance: TRASTUZUMAB
     Dosage: CYCLE 4
     Route: 042
     Dates: start: 20131021
  12. TRASTUZUMAB [Suspect]
     Active Substance: TRASTUZUMAB
     Dosage: CYCLE 5
     Route: 042
     Dates: start: 20131111

REACTIONS (2)
  - Wound dehiscence [Recovered/Resolved with Sequelae]
  - Pleural effusion [Recovered/Resolved with Sequelae]

NARRATIVE: CASE EVENT DATE: 20150806
